FAERS Safety Report 9914473 (Version 1)
Quarter: 2014Q1

REPORT INFORMATION
  Report Type: Spontaneous
  Country: US (occurrence: None)
  Receive Date: 20140219
  Receipt Date: 20140219
  Transmission Date: 20141002
  Serious: Yes (Other)
  Sender: FDA-Public Use
  Company Number: None

PATIENT
  Age: 36 Year
  Sex: Female
  Weight: 81.65 kg

DRUGS (1)
  1. TENUATE DOSPAN [Suspect]
     Indication: WEIGHT DECREASED
     Dosage: 1 PILL PER DAY ONCE DAILY
     Route: 048

REACTIONS (2)
  - Drug ineffective [None]
  - Drug dependence [None]
